FAERS Safety Report 5425016-8 (Version None)
Quarter: 2007Q3

REPORT INFORMATION
  Report Type: 
  Country: None (occurrence: None)
  Receive Date: 20070822
  Receipt Date: 20070807
  Transmission Date: 20080115
  Serious: Yes (Death, Hospitalization)
  Sender: FDA-Public Use
  Company Number: 2007S1000312

PATIENT
  Age: 70 Year
  Sex: Male

DRUGS (2)
  1. CUBICIN [Suspect]
     Indication: BACTERAEMIA
     Dosage: 8 MG/KG;Q24H;IV
     Route: 042
     Dates: start: 20070724, end: 20070731
  2. VANCOMYCIN [Concomitant]

REACTIONS (5)
  - ELECTROMECHANICAL DISSOCIATION [None]
  - HAEMODIALYSIS [None]
  - HYPERKALAEMIA [None]
  - RESPIRATORY FAILURE [None]
  - RHABDOMYOLYSIS [None]
